FAERS Safety Report 11226429 (Version 1)
Quarter: 2015Q2

REPORT INFORMATION
  Report Type: Spontaneous
  Country: GB (occurrence: GB)
  Receive Date: 20150629
  Receipt Date: 20150629
  Transmission Date: 20150821
  Serious: Yes (Other)
  Sender: FDA-Public Use
  Company Number: GB-TEVA-572889ACC

PATIENT
  Age: 61 Year
  Sex: Male

DRUGS (4)
  1. LEVOTHYROXINE [Concomitant]
     Active Substance: LEVOTHYROXINE
  2. ALFUZOSIN [Concomitant]
     Active Substance: ALFUZOSIN
  3. PAROXETINE [Suspect]
     Active Substance: PAROXETINE\PAROXETINE HYDROCHLORIDE
     Indication: DEPRESSION
     Dosage: 20 MILLIGRAM DAILY; 20 MG, 1D
     Route: 048
     Dates: start: 20150604, end: 20150604
  4. FLUTICASONE [Concomitant]
     Active Substance: FLUTICASONE\FLUTICASONE PROPIONATE

REACTIONS (7)
  - Serotonin syndrome [Recovered/Resolved]
  - Neck pain [Recovered/Resolved]
  - Confusional state [Recovered/Resolved]
  - Dry mouth [Recovered/Resolved]
  - Lethargy [Recovered/Resolved]
  - Rash [Recovered/Resolved]
  - Coordination abnormal [Recovered/Resolved]

NARRATIVE: CASE EVENT DATE: 20150605
